FAERS Safety Report 10361710 (Version 1)
Quarter: 2014Q3

REPORT INFORMATION
  Report Type: Spontaneous
  Country: US (occurrence: US)
  Receive Date: 20140805
  Receipt Date: 20140805
  Transmission Date: 20150326
  Serious: Yes (Other)
  Sender: FDA-Public Use
  Company Number: US-BEH-2014044192

PATIENT
  Age: 19 Year
  Sex: Male

DRUGS (1)
  1. PRIVIGEN [Suspect]
     Active Substance: HUMAN IMMUNOGLOBULIN G
     Dosage: ??-???-2004

REACTIONS (8)
  - Bronchitis [Unknown]
  - Streptococcal infection [Unknown]
  - Acne [Unknown]
  - Asperger^s disorder [Unknown]
  - Pneumonia [Unknown]
  - Staphylococcal skin infection [Unknown]
  - Pulmonary function test decreased [Unknown]
  - Lung disorder [Unknown]

NARRATIVE: CASE EVENT DATE: 2007
